FAERS Safety Report 4533265-6 (Version None)
Quarter: 2004Q4

REPORT INFORMATION
  Report Type: 
  Country: None (occurrence: None)
  Receive Date: 20041221
  Receipt Date: 20041215
  Transmission Date: 20050328
  Serious: Yes (Hospitalization)
  Sender: FDA-Public Use
  Company Number: US-BRISTOL-MYERS SQUIBB COMPANY-12796090

PATIENT
  Age: 24 Year
  Sex: Male

DRUGS (3)
  1. ETOPOSIDE [Suspect]
     Indication: TESTIS CANCER
     Route: 042
     Dates: start: 20041214, end: 20041214
  2. CISPLATIN [Suspect]
     Indication: TESTIS CANCER
  3. IFOSFAMIDE [Suspect]
     Indication: TESTIS CANCER

REACTIONS (1)
  - PARALYSIS [None]
